FAERS Safety Report 6820617-4 (Version None)
Quarter: 2010Q3

REPORT INFORMATION
  Report Type: 
  Country: None (occurrence: None)
  Receive Date: 20100707
  Receipt Date: 20100607
  Transmission Date: 20110219
  Serious: Yes (Hospitalization)
  Sender: FDA-Public Use
  Company Number: US-BIOGENIDEC-2009BI010305

PATIENT
  Age: 47 Year
  Sex: Female

DRUGS (2)
  1. TYSABRI [Suspect]
     Indication: MULTIPLE SCLEROSIS
     Route: 042
     Dates: start: 20050101, end: 20050201
  2. TYSABRI [Suspect]
     Route: 042
     Dates: start: 20070305, end: 20100422

REACTIONS (5)
  - CONVULSION [None]
  - MULTIPLE SCLEROSIS RELAPSE [None]
  - PNEUMONIA [None]
  - PRESYNCOPE [None]
  - SINUSITIS [None]
